FAERS Safety Report 12884335 (Version 1)
Quarter: 2016Q4

REPORT INFORMATION
  Report Type: Spontaneous
  Country: US (occurrence: US)
  Receive Date: 20161024
  Receipt Date: 20161024
  Transmission Date: 20170207
  Serious: No
  Sender: FDA-Public Use
  Company Number: None

PATIENT
  Age: 48 Year
  Sex: Female

DRUGS (1)
  1. DAPTOMYCIN 500MG FRESENIUS KABI [Suspect]
     Active Substance: DAPTOMYCIN
     Indication: PNEUMONIA STAPHYLOCOCCAL
     Route: 042
     Dates: start: 20160923, end: 20161005

REACTIONS (1)
  - Blood creatine phosphokinase increased [None]

NARRATIVE: CASE EVENT DATE: 20161005
